FAERS Safety Report 11826630 (Version 3)
Quarter: 2016Q1

REPORT INFORMATION
  Report Type: Spontaneous
  Country: IN (occurrence: IN)
  Receive Date: 20151211
  Receipt Date: 20160212
  Transmission Date: 20160525
  Serious: Yes (Hospitalization)
  Sender: FDA-Public Use
  Company Number: IN-009507513-1512IND005733

PATIENT
  Age: 70 Year
  Sex: Female
  Weight: 100 kg

DRUGS (1)
  1. JANUMET [Suspect]
     Active Substance: METFORMIN HYDROCHLORIDE\SITAGLIPTIN PHOSPHATE
     Indication: DIABETES MELLITUS
     Dosage: 1 TABLET/DAY
     Route: 048

REACTIONS (5)
  - Pollakiuria [Unknown]
  - Anxiety [Unknown]
  - Inappropriate schedule of drug administration [Unknown]
  - Asthenia [Not Recovered/Not Resolved]
  - Blood sodium decreased [Unknown]

NARRATIVE: CASE EVENT DATE: 20151207
